APPROVED DRUG PRODUCT: TRAMADOL HYDROCHLORIDE
Active Ingredient: TRAMADOL HYDROCHLORIDE
Strength: 50MG
Dosage Form/Route: TABLET;ORAL
Application: A211825 | Product #001 | TE Code: AB
Applicant: UNICHEM LABORATORIES LTD
Approved: Aug 9, 2019 | RLD: No | RS: No | Type: RX